FAERS Safety Report 6085979-7 (Version None)
Quarter: 2009Q1

REPORT INFORMATION
  Report Type: 
  Country: None (occurrence: None)
  Receive Date: 20090220
  Receipt Date: 20090210
  Transmission Date: 20090719
  Serious: Yes (Hospitalization, Other)
  Sender: FDA-Public Use
  Company Number: JP-PFIZER INC-2008158351

PATIENT

DRUGS (9)
  1. MIGLITOL [Suspect]
     Indication: DIABETES MELLITUS
     Dosage: 150 MG, UNK
     Route: 048
     Dates: start: 20081104, end: 20081106
  2. PARIET [Concomitant]
     Dosage: 10 MG, UNK
     Route: 048
     Dates: start: 20080227
  3. MUCOSTA [Concomitant]
     Dosage: 300 MG, UNK
     Route: 048
     Dates: start: 20080227
  4. LOXONIN [Concomitant]
     Dosage: 180 MG, UNK
     Route: 048
     Dates: start: 20080827
  5. PREDNISOLONE [Concomitant]
     Dosage: 60 MG, UNK
     Route: 048
     Dates: start: 20080831
  6. ALLELOCK [Concomitant]
     Dosage: 10 MG, UNK
     Route: 048
     Dates: start: 20080902
  7. ACTONEL [Concomitant]
     Dosage: 17.5 MG, UNK
     Route: 048
     Dates: start: 20080909
  8. ROHYPNOL [Concomitant]
     Dosage: 2 MG, UNK
     Route: 048
     Dates: start: 20080910
  9. BROTIZOLAM [Concomitant]
     Dosage: 0.5 MG, UNK
     Route: 048
     Dates: start: 20080929

REACTIONS (2)
  - ABDOMINAL DISTENSION [None]
  - ILEUS PARALYTIC [None]
